FAERS Safety Report 4997898-5 (Version None)
Quarter: 2006Q2

REPORT INFORMATION
  Report Type: 
  Country: None (occurrence: None)
  Receive Date: 20060508
  Receipt Date: 20060420
  Transmission Date: 20061013
  Serious: Yes (Other)
  Sender: FDA-Public Use
  Company Number: 2005165646

PATIENT
  Age: 73 Year
  Sex: Female
  Weight: 77.1115 kg

DRUGS (2)
  1. LIPITOR [Suspect]
     Indication: BLOOD CHOLESTEROL INCREASED
     Dosage: 10 MG (10 MG, 1 IN 1 D), ORAL
     Route: 048
     Dates: start: 20010101
  2. ATENOLOL [Concomitant]

REACTIONS (3)
  - EXOSTOSIS [None]
  - MORTON'S NEUROMA [None]
  - WRONG TECHNIQUE IN DRUG USAGE PROCESS [None]
